FAERS Safety Report 7851785-3 (Version None)
Quarter: 2011Q4

REPORT INFORMATION
  Report Type: 
  Country: None (occurrence: None)
  Receive Date: 20111026
  Receipt Date: 20111017
  Transmission Date: 20120403
  Serious: Yes (Other)
  Sender: FDA-Public Use
  Company Number: US-ROCHE-1005061

PATIENT
  Sex: Male

DRUGS (3)
  1. PROGRAF [Concomitant]
  2. MYCOPHENOLATE MOFETIL (CELLCEPT) [Concomitant]
  3. VALCYTE [Suspect]
     Indication: ANTIVIRAL PROPHYLAXIS

REACTIONS (7)
  - TREMOR [None]
  - ELECTROLYTE IMBALANCE [None]
  - LABORATORY TEST ABNORMAL [None]
  - PORTAL VEIN STENOSIS [None]
  - POLLAKIURIA [None]
  - LIVER TRANSPLANT REJECTION [None]
  - DEHYDRATION [None]
